FAERS Safety Report 23071044 (Version 3)
Quarter: 2023Q4

REPORT INFORMATION
  Report Type: Spontaneous
  Country: US (occurrence: US)
  Receive Date: 20231016
  Receipt Date: 20231218
  Transmission Date: 20240109
  Serious: No
  Sender: FDA-Public Use
  Company Number: US-PFIZER INC-PV202300168742

PATIENT
  Age: 73 Year
  Sex: Female

DRUGS (2)
  1. XELJANZ [Suspect]
     Active Substance: TOFACITINIB CITRATE
     Dosage: UNK
  2. XELJANZ [Suspect]
     Active Substance: TOFACITINIB CITRATE
     Dosage: UNK
     Dates: start: 20231108

REACTIONS (6)
  - Condition aggravated [Unknown]
  - Product dose omission issue [Unknown]
  - Ear congestion [Unknown]
  - Ear infection [Unknown]
  - Sensitivity to weather change [Unknown]
  - Memory impairment [Unknown]

NARRATIVE: CASE EVENT DATE: 20230101
